FAERS Safety Report 4682810-9 (Version None)
Quarter: 2005Q2

REPORT INFORMATION
  Report Type: 
  Country: None (occurrence: None)
  Receive Date: 20050606
  Receipt Date: 20050511
  Transmission Date: 20051028
  Serious: Yes (Life-Threatening)
  Sender: FDA-Public Use
  Company Number: 2005AP02793

PATIENT
  Age: 20726 Day
  Sex: Male
  Weight: 77.6 kg

DRUGS (5)
  1. DIPRIVAN [Suspect]
     Indication: GENERAL ANAESTHESIA
     Route: 042
     Dates: start: 20050511, end: 20050511
  2. DIPRIVAN [Suspect]
     Route: 042
     Dates: start: 20050511, end: 20050511
  3. PANCURONIUM BROMIDE [Suspect]
     Indication: MUSCLE RELAXANT THERAPY
     Route: 042
     Dates: start: 20050511, end: 20050511
  4. PANCURONIUM BROMIDE [Suspect]
     Route: 042
     Dates: start: 20050511, end: 20050511
  5. NICARDIPINE HCL [Concomitant]
     Route: 042
     Dates: start: 20050511, end: 20050511

REACTIONS (4)
  - ANAPHYLACTIC SHOCK [None]
  - BLOOD PRESSURE INCREASED [None]
  - LARYNGEAL OEDEMA [None]
  - OBSTRUCTIVE AIRWAYS DISORDER [None]
